FAERS Safety Report 6774448-4 (Version None)
Quarter: 2010Q2

REPORT INFORMATION
  Report Type: 
  Country: None (occurrence: None)
  Receive Date: 20100617
  Receipt Date: 20100603
  Transmission Date: 20101027
  Serious: Yes (Other)
  Sender: FDA-Public Use
  Company Number: PHHY2010CA37021

PATIENT

DRUGS (5)
  1. ALISKIREN ALI+ [Suspect]
  2. BETA BLOCKING AGENTS [Concomitant]
  3. CALCIUM CHANNEL BLOCKERS [Concomitant]
  4. ACE INHIBITORS AND DIURETICS [Concomitant]
  5. PRAZOSIN HCL [Concomitant]
     Dosage: 2 MG, BID

REACTIONS (2)
  - ABDOMINAL DISCOMFORT [None]
  - INFLAMMATORY BOWEL DISEASE [None]
